FAERS Safety Report 6874748-3 (Version None)
Quarter: 2010Q3

REPORT INFORMATION
  Report Type: 
  Country: None (occurrence: None)
  Receive Date: 20100723
  Receipt Date: 20100716
  Transmission Date: 20110219
  Serious: Yes (Other)
  Sender: FDA-Public Use
  Company Number: TPA2010A04159

PATIENT
  Age: 65 Year
  Sex: Female
  Weight: 101.1521 kg

DRUGS (7)
  1. ACTOS [Suspect]
     Indication: TYPE 2 DIABETES MELLITUS
     Dosage: 45 MG, 1 IN 1 D, PER ORAL
     Route: 048
     Dates: start: 20100628
  2. METFORMIN HCL [Concomitant]
  3. BYETTA [Concomitant]
  4. LEVOTHYROXINE SODIUM [Concomitant]
  5. SERTRALINE (SERTRALINE) [Concomitant]
  6. CRESTOR [Concomitant]
  7. RAMIPRIL [Concomitant]

REACTIONS (10)
  - DYSPNOEA [None]
  - FACE OEDEMA [None]
  - FATIGUE [None]
  - HEADACHE [None]
  - HYPERSOMNIA [None]
  - OEDEMA [None]
  - OEDEMA PERIPHERAL [None]
  - STRESS [None]
  - TONGUE OEDEMA [None]
  - WEIGHT INCREASED [None]
